FAERS Safety Report 25810202 (Version 1)
Quarter: 2025Q3

REPORT INFORMATION
  Report Type: Spontaneous
  Country: US (occurrence: US)
  Receive Date: 20250917
  Receipt Date: 20250917
  Transmission Date: 20251021
  Serious: No
  Sender: ROCHE
  Company Number: US-ROCHE-10000384094

PATIENT
  Sex: Male

DRUGS (27)
  1. ACTEMRA ACTPEN [Suspect]
     Active Substance: TOCILIZUMAB
     Indication: Rheumatoid arthritis
     Dosage: DOSE: 162 MG (0.9 ML)
     Route: 058
  2. LEFLUNOMIDE [Concomitant]
     Active Substance: LEFLUNOMIDE
  3. DOXYCYCLINE CPD [Concomitant]
  4. MAGNESIUM [Concomitant]
     Active Substance: MAGNESIUM
  5. REMERON [Concomitant]
     Active Substance: MIRTAZAPINE
  6. CLONIDINE HC [Concomitant]
  7. MIRTAZAPINE [Concomitant]
     Active Substance: MIRTAZAPINE
  8. PROAIR HFA [Concomitant]
     Active Substance: ALBUTEROL SULFATE
  9. FLUCONAZOLE [Concomitant]
     Active Substance: FLUCONAZOLE
  10. AMITRIPTYLINE HYDROCHLORIDE [Concomitant]
     Active Substance: AMITRIPTYLINE HYDROCHLORIDE
  11. FENOFIBRATE [Concomitant]
     Active Substance: FENOFIBRATE
  12. ROPINIROLE H [Concomitant]
  13. METFORMIN HYDROCHLORIDE [Concomitant]
     Active Substance: METFORMIN HYDROCHLORIDE
  14. TRIAMCINOLON [Concomitant]
  15. CLONAZEPAM [Concomitant]
     Active Substance: CLONAZEPAM
  16. PREDNISONE [Concomitant]
     Active Substance: PREDNISONE
  17. BUPROPION HC [Concomitant]
  18. CYMBALTA CPE [Concomitant]
  19. BYSTOLIC [Concomitant]
     Active Substance: NEBIVOLOL HYDROCHLORIDE
  20. MELOXICAM [Concomitant]
     Active Substance: MELOXICAM
  21. ALPRAZOLAM [Concomitant]
     Active Substance: ALPRAZOLAM
  22. CLOPIDOGREL [Concomitant]
     Active Substance: CLOPIDOGREL BISULFATE
  23. ABILIFY [Concomitant]
     Active Substance: ARIPIPRAZOLE
  24. AMITRIPTYLINE [Concomitant]
     Active Substance: AMITRIPTYLINE
  25. TIZANIDINE HYDROCHLORIDE [Concomitant]
     Active Substance: TIZANIDINE HYDROCHLORIDE
  26. TRAMADOL HCL [Concomitant]
     Active Substance: TRAMADOL HYDROCHLORIDE
  27. ACYCLOVIR [Concomitant]
     Active Substance: ACYCLOVIR

REACTIONS (1)
  - Nasopharyngitis [Unknown]
